FAERS Safety Report 4788648-6 (Version None)
Quarter: 2005Q4

REPORT INFORMATION
  Report Type: 
  Country: None (occurrence: None)
  Receive Date: 20051005
  Receipt Date: 20050929
  Transmission Date: 20060501
  Serious: Yes (Other)
  Sender: FDA-Public Use
  Company Number: 12336

PATIENT
  Sex: Male

DRUGS (2)
  1. CEFTAZIDIME [Suspect]
     Indication: PSEUDOMONAS INFECTION
     Route: 065
  2. GENTAMICIN [Suspect]
     Indication: PSEUDOMONAS INFECTION
     Route: 065

REACTIONS (2)
  - NEPHRITIS INTERSTITIAL [None]
  - RENAL FAILURE ACUTE [None]
